FAERS Safety Report 12190581 (Version 1)
Quarter: 2016Q1

REPORT INFORMATION
  Report Type: Spontaneous
  Country: US (occurrence: None)
  Receive Date: 20160317
  Receipt Date: 20160317
  Transmission Date: 20160526
  Serious: Yes (Life-Threatening, Hospitalization)
  Sender: FDA-Public Use
  Company Number: None

PATIENT
  Age: 60 Year
  Sex: Male
  Weight: 127.3 kg

DRUGS (1)
  1. LISINOPRIL. [Suspect]
     Active Substance: LISINOPRIL
     Route: 048
     Dates: start: 20150601, end: 20151222

REACTIONS (7)
  - Angioedema [None]
  - Heart rate increased [None]
  - Hypertension [None]
  - Swollen tongue [None]
  - Foreign body [None]
  - Dyspnoea [None]
  - Cardio-respiratory arrest [None]

NARRATIVE: CASE EVENT DATE: 20151222
